FAERS Safety Report 10552490 (Version 5)
Quarter: 2015Q1

REPORT INFORMATION
  Report Type: Report from Study
  Country: GB (occurrence: GB)
  Receive Date: 20141029
  Receipt Date: 20150309
  Transmission Date: 20150720
  Serious: Yes (Other)
  Sender: FDA-Public Use
  Company Number: GB-JNJFOC-20141014850

PATIENT
  Age: 88 Year
  Sex: Female
  Weight: 89 kg

DRUGS (1)
  1. STELARA [Suspect]
     Active Substance: USTEKINUMAB
     Indication: PSORIASIS
     Dosage: SUBCUTANEOUS PREFILLED SYRINGE
     Route: 058
     Dates: start: 201201, end: 201410

REACTIONS (14)
  - Infective exacerbation of chronic obstructive airways disease [Unknown]
  - Psoriasis [Unknown]
  - Lethargy [Unknown]
  - Polycythaemia [Unknown]
  - Oxygen saturation decreased [Unknown]
  - Dizziness [Unknown]
  - Drug ineffective [Unknown]
  - Abdominal discomfort [Unknown]
  - Hiatus hernia [Unknown]
  - Lower respiratory tract infection [Recovered/Resolved]
  - Glucose tolerance impaired [Unknown]
  - Cataract [Unknown]
  - Pulmonary fibrosis [Unknown]
  - Basal cell carcinoma [Unknown]

NARRATIVE: CASE EVENT DATE: 20130211
